FAERS Safety Report 4690808-X (Version None)
Quarter: 2005Q2

REPORT INFORMATION
  Report Type: 
  Country: None (occurrence: None)
  Receive Date: 20050615
  Receipt Date: 20050531
  Transmission Date: 20051028
  Serious: Yes (Other)
  Sender: FDA-Public Use
  Company Number: HQWYE198903JUN05

PATIENT
  Age: 52 Year
  Sex: Female

DRUGS (2)
  1. ENBREL [Suspect]
     Indication: POLYARTHRITIS
     Dosage: ^2 X 25^
     Dates: start: 20010206, end: 20050101
  2. ENBREL [Suspect]
     Dosage: UNKNOWN DOSE AND FREQUENCY
     Dates: start: 20050101

REACTIONS (1)
  - IRIDOCYCLITIS [None]
